FAERS Safety Report 15429204 (Version 2)
Quarter: 2018Q3

REPORT INFORMATION
  Report Type: Spontaneous
  Country: US (occurrence: US)
  Receive Date: 20180926
  Receipt Date: 20180927
  Transmission Date: 20181010
  Serious: No
  Sender: FDA-Public Use
  Company Number: US-PFIZER INC-2018387979

PATIENT
  Sex: Female

DRUGS (3)
  1. BICILLIN L?A [Suspect]
     Active Substance: PENICILLIN G BENZATHINE
     Dosage: UNK
     Dates: end: 201712
  2. BICILLIN L?A [Suspect]
     Active Substance: PENICILLIN G BENZATHINE
     Indication: LYME DISEASE
     Dosage: UNK, 2X/WEEK (1.2 MILLION, 1 SYRINGE TWICE A WEEK FOR 10 DOSES)
     Dates: start: 201708
  3. BICILLIN L?A [Suspect]
     Active Substance: PENICILLIN G BENZATHINE
     Dosage: UNK, 2X/WEEK [2.4 MILLION WITH 10 DOSES: 2 DOSES TWICE A WEEK FOR 5 WEEKS]
     Dates: start: 201709

REACTIONS (1)
  - Vision blurred [Not Recovered/Not Resolved]

NARRATIVE: CASE EVENT DATE: 201712
